FAERS Safety Report 24094073 (Version 1)
Quarter: 2024Q3

REPORT INFORMATION
  Report Type: Spontaneous
  Country: US (occurrence: US)
  Receive Date: 20240716
  Receipt Date: 20240716
  Transmission Date: 20241016
  Serious: Yes (Death)
  Sender: ROCHE
  Company Number: US-ROCHE-10000027267

PATIENT
  Age: 62 Year
  Sex: Male

DRUGS (10)
  1. PIRFENIDONE [Suspect]
     Active Substance: PIRFENIDONE
     Indication: Idiopathic pulmonary fibrosis
     Route: 048
     Dates: start: 20231011, end: 20240709
  2. BENZONATATE [Concomitant]
     Active Substance: BENZONATATE
  3. CRESTOR [Concomitant]
     Active Substance: ROSUVASTATIN CALCIUM
  4. DULERA [Concomitant]
     Active Substance: FORMOTEROL FUMARATE DIHYDRATE\MOMETASONE FUROATE
  5. ELIQUIS [Concomitant]
     Active Substance: APIXABAN
  6. FUROSEMIDE [Concomitant]
     Active Substance: FUROSEMIDE
  7. LISINOPRIL [Concomitant]
     Active Substance: LISINOPRIL
  8. MELATONIN [Concomitant]
     Active Substance: MELATONIN
  9. PANTOPRAZOLE [Concomitant]
     Active Substance: PANTOPRAZOLE
  10. SENOKOT [Concomitant]
     Active Substance: SENNOSIDES

REACTIONS (1)
  - Death [Fatal]

NARRATIVE: CASE EVENT DATE: 20240709
